FAERS Safety Report 9704104 (Version 1)
Quarter: 2013Q4

REPORT INFORMATION
  Report Type: Spontaneous
  Country: US (occurrence: US)
  Receive Date: 20131122
  Receipt Date: 20131122
  Transmission Date: 20140711
  Serious: No
  Sender: FDA-Public Use
  Company Number: US-GLAXOSMITHKLINE-A1000277A

PATIENT
  Age: 45 Year
  Sex: Female

DRUGS (3)
  1. WELLBUTRIN SR [Suspect]
     Indication: ATTENTION DEFICIT/HYPERACTIVITY DISORDER
     Dosage: 150MG TWICE PER DAY
     Route: 048
     Dates: start: 2012
  2. LOESTRIN [Concomitant]
  3. MINOCYCLIN [Concomitant]

REACTIONS (5)
  - Blood pressure increased [Unknown]
  - Feeling abnormal [Unknown]
  - Disturbance in attention [Unknown]
  - Headache [Unknown]
  - Nausea [Unknown]
